FAERS Safety Report 15434832 (Version 1)
Quarter: 2018Q3

REPORT INFORMATION
  Report Type: Spontaneous
  Country: US (occurrence: US)
  Receive Date: 20180923
  Receipt Date: 20180923
  Transmission Date: 20181010
  Serious: Yes (Life-Threatening, Hospitalization, Disabling)
  Sender: FDA-Public Use
  Company Number: None

PATIENT
  Age: 56 Year
  Sex: Female
  Weight: 103.5 kg

DRUGS (3)
  1. EUCERIN ECZEMA RELIEF FLARE UP TREATMENT [Suspect]
     Active Substance: OATMEAL
     Indication: ECZEMA
     Route: 061
     Dates: start: 20171218, end: 20171218
  2. TOPICORT [Concomitant]
     Active Substance: DESOXIMETASONE
  3. HAIR AND NAILS GUMMY VITAMINS [Concomitant]

REACTIONS (7)
  - Urticaria [None]
  - Blood pressure decreased [None]
  - Gait disturbance [None]
  - Dialysis [None]
  - Pain in extremity [None]
  - Peripheral swelling [None]
  - Arthralgia [None]

NARRATIVE: CASE EVENT DATE: 20171224
